FAERS Safety Report 5292604-1 (Version None)
Quarter: 2007Q2

REPORT INFORMATION
  Report Type: 
  Country: None (occurrence: None)
  Receive Date: 20070404
  Receipt Date: 20070326
  Transmission Date: 20071010
  Serious: Yes (Congenital Anomaly)
  Sender: FDA-Public Use
  Company Number: 2007AL001203

PATIENT
  Sex: Male

DRUGS (3)
  1. FLUOXETINE [Suspect]
     Dosage: 20 MG; QD; TRPL
     Route: 064
  2. ZOPICLONE [Concomitant]
  3. FOLIC ACID [Concomitant]

REACTIONS (4)
  - CLEFT PALATE [None]
  - CYANOSIS [None]
  - DRUG EXPOSURE DURING PREGNANCY [None]
  - SOMNOLENCE [None]
